FAERS Safety Report 6076226-0 (Version None)
Quarter: 2009Q1

REPORT INFORMATION
  Report Type: 
  Country: None (occurrence: None)
  Receive Date: 20090212
  Receipt Date: 20090121
  Transmission Date: 20090719
  Serious: Yes (Death)
  Sender: FDA-Public Use
  Company Number: FR-ROCHE-580602

PATIENT
  Sex: Male

DRUGS (13)
  1. ROCEPHIN [Suspect]
     Indication: INFECTION
     Dosage: FORM: INJECTABLE SOLUTION
     Route: 042
     Dates: start: 20080502, end: 20080504
  2. ALLOPURINOL [Suspect]
     Indication: GOUT
     Route: 048
     Dates: start: 20080202, end: 20080502
  3. OMEPRAZOLE [Concomitant]
     Dosage: INTRODUCED BEFORE JANUARY 2008
  4. EPREX [Concomitant]
     Dosage: INTRODUCED BEFORE JANUARY 2008
     Dates: end: 20080201
  5. LOXEN [Concomitant]
     Dosage: INTRODUCED BEFORE JANUARY 2008
     Route: 048
     Dates: end: 20080201
  6. HYPERIUM [Concomitant]
     Dosage: INTRODUCED BEFORE JANUARY 2008
     Dates: end: 20080201
  7. LASILIX [Concomitant]
     Dosage: INTRODUCED BEFORE JANUARY 2008
     Dates: end: 20080201
  8. PLAVIX [Concomitant]
     Dosage: INTRODUCED BEFORE JANUARY 2008
     Route: 048
  9. COLCHIMAX [Concomitant]
     Route: 048
     Dates: start: 20080124, end: 20080205
  10. COLCHIMAX [Concomitant]
     Route: 048
     Dates: start: 20080201, end: 20080507
  11. RILMENIDINE [Concomitant]
     Route: 048
  12. FUROSEMIDE [Concomitant]
     Route: 048
  13. EPREX [Concomitant]
     Route: 058
     Dates: start: 20080201

REACTIONS (1)
  - STEVENS-JOHNSON SYNDROME [None]
